FAERS Safety Report 9933631 (Version 2)
Quarter: 2014Q2

REPORT INFORMATION
  Report Type: Spontaneous
  Country: SE (occurrence: None)
  Receive Date: 20140226
  Receipt Date: 20140401
  Transmission Date: 20141212
  Serious: Yes (Other)
  Sender: FDA-Public Use
  Company Number: SYM-2014-17694

PATIENT
  Sex: Female

DRUGS (1)
  1. VOXRA [Suspect]
     Indication: DEPRESSION

REACTIONS (2)
  - Haemorrhage [None]
  - Oedema [None]
